FAERS Safety Report 6011566-2 (Version None)
Quarter: 2008Q4

REPORT INFORMATION
  Report Type: 
  Country: None (occurrence: None)
  Receive Date: 20081218
  Receipt Date: 20080911
  Transmission Date: 20090506
  Serious: Yes (Other)
  Sender: FDA-Public Use
  Company Number: US-ASTRAZENECA-2008UW18904

PATIENT
  Age: 60 Year
  Sex: Male

DRUGS (10)
  1. CRESTOR [Suspect]
     Route: 048
  2. ISOSORBIDE [Concomitant]
  3. CLARINEX [Concomitant]
  4. BETAXOLOL [Concomitant]
  5. BUSPIRONE HCL [Concomitant]
  6. PROZAC [Concomitant]
  7. LISINOPRIL [Concomitant]
     Dosage: 20
  8. ASPIRIN [Concomitant]
  9. COQ [Concomitant]
     Dosage: 10 200 MG QD
  10. TOPAMAX [Concomitant]

REACTIONS (2)
  - BLOOD CREATINE PHOSPHOKINASE INCREASED [None]
  - MYALGIA [None]
